FAERS Safety Report 4612756-3 (Version None)
Quarter: 2005Q1

REPORT INFORMATION
  Report Type: 
  Country: None (occurrence: None)
  Receive Date: 20050316
  Receipt Date: 20050307
  Transmission Date: 20050727
  Serious: Yes (Other)
  Sender: FDA-Public Use
  Company Number: 2005032411

PATIENT
  Sex: Male

DRUGS (6)
  1. CELEBREX [Suspect]
     Indication: PAIN
     Dosage: ORAL
     Route: 048
  2. BEXTRA [Suspect]
     Indication: ILL-DEFINED DISORDER
     Dosage: ORAL
     Route: 048
  3. NEURONTIN [Suspect]
     Indication: PAIN
     Dosage: ORAL
     Route: 048
  4. CYCLOBENZAPRINE HYDROCHLORIDE [Concomitant]
  5. LIDOCAINE HYDROCHLORIDE [Concomitant]
  6. OXYCODONE HYDROCHLORIDE (OXYCODONE HYDROCHLORIDE) [Concomitant]

REACTIONS (3)
  - ARTERIAL DISORDER [None]
  - DRUG EFFECT DECREASED [None]
  - MYOCARDIAL INFARCTION [None]
